FAERS Safety Report 13228913 (Version 1)
Quarter: 2017Q1

REPORT INFORMATION
  Report Type: Spontaneous
  Country: FR (occurrence: FR)
  Receive Date: 20170213
  Receipt Date: 20170213
  Transmission Date: 20170428
  Serious: Yes (Hospitalization)
  Sender: FDA-Public Use
  Company Number: FR-009507513-1702FRA005030

PATIENT
  Sex: Female

DRUGS (3)
  1. HEXABRIX [Suspect]
     Active Substance: IOXAGLATE MEGLUMINE\IOXAGLATE SODIUM
     Indication: OSTEOARTHRITIS
     Dosage: UNK
     Route: 014
     Dates: start: 20151008, end: 20151008
  2. EPINEPHRINE (+) LIDOCAINE HYDROCHLORIDE [Suspect]
     Active Substance: EPINEPHRINE\LIDOCAINE HYDROCHLORIDE
     Indication: OSTEOARTHRITIS
     Dosage: UNK
     Route: 014
     Dates: start: 20151008, end: 20151008
  3. DIPROSTENE [Suspect]
     Active Substance: BETAMETHASONE DIPROPIONATE\BETAMETHASONE SODIUM PHOSPHATE
     Indication: OSTEOARTHRITIS
     Dosage: UNK
     Route: 014
     Dates: start: 20151008, end: 20151008

REACTIONS (1)
  - Reversible cerebral vasoconstriction syndrome [Recovered/Resolved]
